FAERS Safety Report 9830979 (Version 2)
Quarter: 2014Q1

REPORT INFORMATION
  Report Type: Report from Study
  Country: VE (occurrence: VE)
  Receive Date: 20140120
  Receipt Date: 20140221
  Transmission Date: 20141002
  Serious: Yes (Hospitalization)
  Sender: FDA-Public Use
  Company Number: PHHY2014VE005671

PATIENT
  Age: 63 Year
  Sex: Female

DRUGS (9)
  1. ACLASTA [Suspect]
     Indication: OSTEOPOROSIS
     Dosage: 5 MG, ANNUAL
     Route: 042
     Dates: start: 20120203
  2. ACLASTA [Suspect]
     Dosage: 5 MG, ANNUAL
     Route: 042
     Dates: start: 20130114
  3. ACLASTA [Suspect]
     Dosage: 5 MG, ANNUAL
     Route: 042
     Dates: start: 201402
  4. COZAAR [Concomitant]
     Indication: HYPERTENSION
     Dosage: 100 MG, DAILY
     Route: 048
  5. CALCIOFAR D [Concomitant]
     Indication: OSTEOPOROSIS
     Dosage: 1 DF, DAILY
     Route: 048
  6. CADUET [Concomitant]
     Indication: HYPERTENSION
     Dosage: 1 DF, DAILY
     Route: 048
  7. DIOVENOR [Concomitant]
     Indication: CARDIOVASCULAR DISORDER
     Dosage: 600 MG, DAILY
     Route: 048
  8. GLUCOFAGE [Concomitant]
     Indication: HYPERGLYCAEMIA
     Dosage: 500 MG, DAILY
     Route: 048
     Dates: start: 2012
  9. MICROSER [Concomitant]
     Indication: DIZZINESS
     Dosage: 8 MG, DAILY
     Route: 048
     Dates: start: 2012

REACTIONS (3)
  - Road traffic accident [Recovered/Resolved]
  - Multiple injuries [Recovered/Resolved]
  - Amnesia [Recovering/Resolving]
